FAERS Safety Report 5385565-8 (Version None)
Quarter: 2007Q3

REPORT INFORMATION
  Report Type: 
  Country: None (occurrence: None)
  Receive Date: 20070709
  Receipt Date: 20070627
  Transmission Date: 20080115
  Serious: Yes (Hospitalization)
  Sender: FDA-Public Use
  Company Number: B0477872A

PATIENT
  Age: 11 Year
  Sex: Female

DRUGS (3)
  1. LAMOTRIGINE [Suspect]
     Indication: EPILEPSY
  2. VALPROIC ACID [Suspect]
     Indication: EPILEPSY
  3. TOPIRAMATE [Concomitant]

REACTIONS (9)
  - ANOREXIA [None]
  - BACTERIAL INFECTION [None]
  - DRUG ERUPTION [None]
  - IRRITABILITY [None]
  - MALAISE [None]
  - RASH ERYTHEMATOUS [None]
  - RASH MACULO-PAPULAR [None]
  - SEPSIS [None]
  - SUPERINFECTION [None]
